FAERS Safety Report 6540069-1 (Version None)
Quarter: 2010Q1

REPORT INFORMATION
  Report Type: 
  Country: None (occurrence: None)
  Receive Date: 20100115
  Receipt Date: 20091217
  Transmission Date: 20100710
  Serious: Yes (Life-Threatening, Hospitalization)
  Sender: FDA-Public Use
  Company Number: US-SANOFI-AVENTIS-2009SA006637

PATIENT
  Age: 86 Year
  Sex: Male
  Weight: 84.1 kg

DRUGS (12)
  1. PLAVIX [Suspect]
     Indication: ANTIPLATELET THERAPY
     Route: 048
     Dates: start: 20091021, end: 20091021
  2. PLAVIX [Suspect]
     Route: 048
     Dates: start: 20091022
  3. ASPIRIN [Suspect]
     Indication: ANTIPLATELET THERAPY
     Route: 048
     Dates: start: 20091020
  4. ADENOSINE [Concomitant]
     Indication: PERCUTANEOUS CORONARY INTERVENTION
     Route: 042
     Dates: start: 20091021, end: 20091021
  5. CEFAZOLIN [Concomitant]
     Dates: start: 20091023, end: 20091023
  6. HEPARIN [Concomitant]
     Dates: start: 20091021, end: 20091021
  7. LIDOCAINE AND EPINEPHRINE [Concomitant]
     Dates: start: 20091023, end: 20091023
  8. PEPCID [Concomitant]
     Dates: start: 20091021, end: 20091024
  9. FENTANYL [Concomitant]
     Dates: start: 20091021, end: 20091023
  10. METOPROLOL [Concomitant]
     Dates: start: 20091023, end: 20091024
  11. VERSED [Concomitant]
     Dates: start: 20091021, end: 20091023
  12. INVESTIGATIONAL DRUG [Suspect]

REACTIONS (1)
  - SICK SINUS SYNDROME [None]
